FAERS Safety Report 11341691 (Version 1)
Quarter: 2015Q3

REPORT INFORMATION
  Report Type: Spontaneous
  Country: US (occurrence: None)
  Receive Date: 20150803
  Receipt Date: 20150803
  Transmission Date: 20151125
  Serious: Yes (Disabling)
  Sender: FDA-Public Use
  Company Number: None

PATIENT
  Age: 60 Year
  Sex: Female
  Weight: 68.04 kg

DRUGS (6)
  1. SYNTHROID [Concomitant]
     Active Substance: LEVOTHYROXINE SODIUM
  2. ARTICANE HCL [Suspect]
     Active Substance: ARTICAINE HYDROCHLORIDE
     Indication: ANALGESIC THERAPY
     Dosage: DURING DENTAL PROC
     Route: 028
     Dates: start: 20140715
  3. VIT K2 [Concomitant]
  4. VITAMIN D3 [Concomitant]
     Active Substance: CHOLECALCIFEROL
  5. SOLGAR [Concomitant]
  6. NIACIN. [Concomitant]
     Active Substance: NIACIN

REACTIONS (3)
  - Pain [None]
  - Nerve injury [None]
  - Visual acuity reduced [None]

NARRATIVE: CASE EVENT DATE: 20140809
